FAERS Safety Report 9224067 (Version 1)
Quarter: 2013Q2

REPORT INFORMATION
  Report Type: Spontaneous
  Country: KR (occurrence: KR)
  Receive Date: 20130411
  Receipt Date: 20130411
  Transmission Date: 20140414
  Serious: Yes (Other)
  Sender: FDA-Public Use
  Company Number: KR-ACCORD-017146

PATIENT
  Age: 69 Year
  Sex: Male

DRUGS (2)
  1. DONEPEZIL [Suspect]
     Indication: COGNITIVE DISORDER
  2. RISPERIDONE [Suspect]
     Indication: DELUSION

REACTIONS (1)
  - Parkinsonism [Recovered/Resolved]
